FAERS Safety Report 9161173 (Version 1)
Quarter: 2013Q1

REPORT INFORMATION
  Report Type: Spontaneous
  Country: US (occurrence: US)
  Receive Date: 20130313
  Receipt Date: 20130313
  Transmission Date: 20140127
  Serious: Yes (Death, Hospitalization)
  Sender: FDA-Public Use
  Company Number: US-GLAXOSMITHKLINE-A0790849A

PATIENT
  Age: 76 Year
  Sex: Female

DRUGS (1)
  1. AVANDIA [Suspect]
     Indication: DIABETES MELLITUS
     Dosage: 4MG PER DAY
     Route: 048
     Dates: end: 200403

REACTIONS (5)
  - Ischaemic cardiomyopathy [Fatal]
  - Acute myocardial infarction [Unknown]
  - Cardiogenic shock [Unknown]
  - Cardiac failure congestive [Unknown]
  - Chest pain [Unknown]
